FAERS Safety Report 11248429 (Version 2)
Quarter: 2015Q3

REPORT INFORMATION
  Report Type: Spontaneous
  Country: GB (occurrence: None)
  Receive Date: 20150626
  Receipt Date: 20150730
  Transmission Date: 20151125
  Serious: Yes (Other)
  Sender: FDA-Public Use
  Company Number: BTG00268

PATIENT
  Age: 91 Year
  Sex: Male

DRUGS (2)
  1. DIGIFAB [Suspect]
     Active Substance: OVINE DIGOXIN IMMUNE FAB
     Indication: PRODUCT USED FOR UNKNOWN INDICATION
     Dosage: 80 MG, SINGLE (2 VIALS)
     Dates: start: 20150513
  2. DIGOXIN (DIGOXIN) [Suspect]
     Active Substance: DIGOXIN
     Indication: TOXICITY TO VARIOUS AGENTS
     Dosage: SINGLE, (2 VIALS)

REACTIONS (3)
  - Toxicity to various agents [None]
  - Drug effect incomplete [None]
  - Bradycardia [None]

NARRATIVE: CASE EVENT DATE: 20150514
